FAERS Safety Report 12442470 (Version 2)
Quarter: 2016Q2

REPORT INFORMATION
  Report Type: Spontaneous
  Country: US (occurrence: US)
  Receive Date: 20160607
  Receipt Date: 20160610
  Transmission Date: 20160815
  Serious: No
  Sender: FDA-Public Use
  Company Number: US-BAYER-2016-104715

PATIENT
  Age: 3 Year
  Sex: Male
  Weight: 16.33 kg

DRUGS (2)
  1. CHILDREN CLARITIN ALLERGY [Suspect]
     Active Substance: LORATADINE
     Indication: SEASONAL ALLERGY
     Dosage: 1.5 DF (TEASPOON), QD
     Route: 048
  2. CHILDREN CLARITIN ALLERGY [Suspect]
     Active Substance: LORATADINE
     Indication: MULTIPLE ALLERGIES
     Dosage: 4 DF (TEASPOON), ONCE
     Route: 048
     Dates: start: 20160527, end: 20160527

REACTIONS (4)
  - Drug administered to patient of inappropriate age [None]
  - Accidental exposure to product by child [None]
  - Wrong technique in product usage process [None]
  - Product use issue [None]

NARRATIVE: CASE EVENT DATE: 20160527
